FAERS Safety Report 22061942 (Version 1)
Quarter: 2023Q1

REPORT INFORMATION
  Report Type: Spontaneous
  Country: FR (occurrence: FR)
  Receive Date: 20230304
  Receipt Date: 20230304
  Transmission Date: 20230417
  Serious: Yes (Other)
  Sender: FDA-Public Use
  Company Number: None

PATIENT
  Age: 84 Year
  Sex: Male
  Weight: 67 kg

DRUGS (12)
  1. IRINOTECAN HYDROCHLORIDE [Suspect]
     Active Substance: IRINOTECAN HYDROCHLORIDE
     Indication: Rectal cancer stage IV
     Dates: start: 20210331, end: 20210512
  2. FLUOROURACIL [Suspect]
     Active Substance: FLUOROURACIL
     Indication: Rectal cancer stage IV
     Dates: start: 20210331, end: 20210512
  3. VECTIBIX [Suspect]
     Active Substance: PANITUMUMAB
     Indication: Rectal cancer stage IV
     Dosage: STRENGTH: 20MG/ML, CONCENTRATE FOR SOLUTION FOR INFUSION
     Dates: start: 20220930, end: 20221001
  4. VECTIBIX [Suspect]
     Active Substance: PANITUMUMAB
     Indication: Rectal cancer stage IV
     Dosage: STRENGTH: 20MG/ML, CONCENTRATE FOR SOLUTION FOR INFUSION
     Dates: start: 20210331, end: 20210512
  5. VECTIBIX [Suspect]
     Active Substance: PANITUMUMAB
     Indication: Rectal cancer stage IV
     Dosage: STRENGTH: 20MG/ML, CONCENTRATE FOR SOLUTION FOR INFUSION
     Dates: start: 20220621, end: 20220802
  6. VECTIBIX [Suspect]
     Active Substance: PANITUMUMAB
     Indication: Rectal cancer stage IV
     Dosage: STRENGTH: 20MG/ML, CONCENTRATE FOR SOLUTION FOR INFUSION
     Dates: start: 20220503, end: 20220614
  7. VECTIBIX [Suspect]
     Active Substance: PANITUMUMAB
     Indication: Rectal cancer stage IV
     Dosage: STRENGTH: 20MG/ML, CONCENTRATE FOR SOLUTION FOR INFUSION
     Dates: start: 20211201, end: 20220111
  8. FLUOROURACIL [Suspect]
     Active Substance: FLUOROURACIL
     Indication: Rectal cancer stage IV
     Dates: start: 20211201, end: 20220111
  9. FLUOROURACIL [Suspect]
     Active Substance: FLUOROURACIL
     Indication: Rectal cancer stage IV
     Dates: start: 20210621, end: 20210802
  10. FLUOROURACIL [Suspect]
     Active Substance: FLUOROURACIL
     Indication: Rectal cancer stage IV
     Dates: start: 20220930, end: 20221001
  11. FLUOROURACIL [Suspect]
     Active Substance: FLUOROURACIL
     Indication: Rectal cancer stage IV
     Dates: start: 20220503, end: 20220614
  12. IRINOTECAN HYDROCHLORIDE [Suspect]
     Active Substance: IRINOTECAN HYDROCHLORIDE
     Indication: Rectal cancer stage IV
     Dates: start: 20211201, end: 20220111

REACTIONS (2)
  - Angina pectoris [Recovered/Resolved]
  - Hypercholesterolaemia [Not Recovered/Not Resolved]

NARRATIVE: CASE EVENT DATE: 20210501
